FAERS Safety Report 10373157 (Version 2)
Quarter: 2014Q3

REPORT INFORMATION
  Report Type: Spontaneous
  Country: US (occurrence: US)
  Receive Date: 20140808
  Receipt Date: 20140808
  Transmission Date: 20150326
  Serious: No
  Sender: FDA-Public Use
  Company Number: US-BRISTOL-MYERS SQUIBB COMPANY-20097010

PATIENT
  Age: 73 Year
  Sex: Female
  Weight: 48.52 kg

DRUGS (14)
  1. SPRYCEL [Suspect]
     Active Substance: DASATINIB
     Indication: CHRONIC MYELOID LEUKAEMIA
     Dosage: TABLET
     Route: 048
     Dates: start: 201311, end: 201401
  2. AMITRIPTYLINE HCL [Concomitant]
     Active Substance: AMITRIPTYLINE
     Dosage: TABLET
     Route: 048
  3. HYDROXYZINE HCL [Concomitant]
     Active Substance: HYDROXYZINE HYDROCHLORIDE
     Indication: PRURITUS
     Dosage: TABLET
     Route: 048
  4. TERBINAFINE [Concomitant]
     Active Substance: TERBINAFINE
     Dosage: TABLET
     Route: 048
  5. LEVOTHYROXINE SODIUM. [Concomitant]
     Active Substance: LEVOTHYROXINE SODIUM
     Dosage: TABLET
     Route: 048
  6. ONDANSETRON HCL [Concomitant]
     Active Substance: ONDANSETRON HYDROCHLORIDE
     Dosage: TABLET
     Route: 048
  7. LOPRESSOR [Concomitant]
     Active Substance: METOPROLOL TARTRATE
     Dosage: 50MG TABLET?1DF = 1.5 TABLET
     Route: 048
  8. ASPIRIN. [Concomitant]
     Active Substance: ASPIRIN
     Dosage: TABLET
     Route: 048
  9. PLETAL [Concomitant]
     Active Substance: CILOSTAZOL
     Dosage: TABLET
     Route: 048
  10. VITAMIN D [Concomitant]
     Active Substance: CHOLECALCIFEROL
     Dosage: 1DF = 400UNIT?TABLET
     Route: 048
  11. PROCHLORPERAZINE MALEATE. [Concomitant]
     Active Substance: PROCHLORPERAZINE MALEATE
     Dosage: TABLET
     Route: 048
  12. CALCIUM [Concomitant]
     Active Substance: CALCIUM
     Dosage: TABLET
     Route: 048
  13. DIPHENOXYLATE + ATROPINE [Concomitant]
     Dosage: 1DF= 1 TABLET(2.5-0.025MG) EVERY 4-6HOURS
     Route: 048
  14. MULTIPLE VITAMINS [Concomitant]
     Active Substance: VITAMINS
     Dosage: TABLET
     Route: 048

REACTIONS (2)
  - Pleural effusion [Recovered/Resolved]
  - Peripheral swelling [Unknown]
